FAERS Safety Report 5492119-1 (Version None)
Quarter: 2007Q4

REPORT INFORMATION
  Report Type: 
  Country: None (occurrence: None)
  Receive Date: 20071015
  Receipt Date: 20070709
  Transmission Date: 20080405
  Serious: No
  Sender: FDA-Public Use
  Company Number: 2007SP002503

PATIENT
  Age: 78 Year
  Sex: Female
  Weight: 62.1428 kg

DRUGS (5)
  1. LUNESTA [Suspect]
     Indication: INSOMNIA
     Dosage: 2 MG; HS; ORAL; 3 MG; 1X; ORAL
     Route: 048
     Dates: start: 20070201, end: 20070101
  2. LUNESTA [Suspect]
     Indication: INSOMNIA
     Dosage: 2 MG; HS; ORAL; 3 MG; 1X; ORAL
     Route: 048
     Dates: start: 20070401, end: 20070401
  3. VITAMIN CAP [Concomitant]
  4. ACETYLSALICYLIC ACID SRT [Concomitant]
  5. ASCORBIC ACID [Concomitant]

REACTIONS (5)
  - BALANCE DISORDER [None]
  - DRUG INEFFECTIVE [None]
  - HALLUCINATION [None]
  - HEADACHE [None]
  - INSOMNIA [None]
